FAERS Safety Report 14226846 (Version 1)
Quarter: 2017Q4

REPORT INFORMATION
  Report Type: Spontaneous
  Country: GR (occurrence: GR)
  Receive Date: 20171127
  Receipt Date: 20171127
  Transmission Date: 20180321
  Serious: Yes (Other)
  Sender: FDA-Public Use
  Company Number: GR-GLAXOSMITHKLINE-GR2017GSK161080

PATIENT
  Age: 56 Year
  Sex: Female

DRUGS (2)
  1. LAPRAZOL [Suspect]
     Active Substance: LANSOPRAZOLE
     Indication: GASTROOESOPHAGEAL REFLUX DISEASE
     Dosage: UNK
     Dates: start: 201710
  2. ZINADOL [Suspect]
     Active Substance: CEFUROXIME AXETIL
     Indication: GASTROOESOPHAGEAL REFLUX DISEASE
     Dosage: 1 G, QD
     Dates: start: 20171016

REACTIONS (3)
  - Faeces discoloured [Recovered/Resolved]
  - Abdominal pain [Recovered/Resolved]
  - Haematochezia [Recovered/Resolved]

NARRATIVE: CASE EVENT DATE: 20171018
